FAERS Safety Report 7388761-3 (Version None)
Quarter: 2011Q2

REPORT INFORMATION
  Report Type: 
  Country: None (occurrence: None)
  Receive Date: 20110401
  Receipt Date: 20110329
  Transmission Date: 20111010
  Serious: Yes (Hospitalization, Other)
  Sender: FDA-Public Use
  Company Number: US-ABBOTT-11P-163-0714910-00

PATIENT
  Sex: Male
  Weight: 73.094 kg

DRUGS (36)
  1. NEURONTIN [Concomitant]
     Indication: PRODUCT USED FOR UNKNOWN INDICATION
  2. SUPER BIO-CURCUMIN [Concomitant]
     Indication: PRODUCT USED FOR UNKNOWN INDICATION
  3. SUPPLEMENT WITH BILBERRY [Concomitant]
     Indication: PRODUCT USED FOR UNKNOWN INDICATION
  4. SUPPLEMENT WITH GRAPE SEED AND BLUEBERRY [Concomitant]
     Indication: PRODUCT USED FOR UNKNOWN INDICATION
  5. RESVERT-POMGRN-GM T-GRP-ACI [Concomitant]
     Indication: PRODUCT USED FOR UNKNOWN INDICATION
  6. CHOLECALCIFEROL [Concomitant]
     Indication: PRODUCT USED FOR UNKNOWN INDICATION
  7. SUPPLEMENT WITH GREEN TEA [Concomitant]
     Indication: PRODUCT USED FOR UNKNOWN INDICATION
  8. SUPPLEMENT WITH ROSEMARY [Concomitant]
     Indication: PRODUCT USED FOR UNKNOWN INDICATION
  9. LEUKINE [Suspect]
     Indication: PRODUCT USED FOR UNKNOWN INDICATION
  10. ESTRADIOL [Concomitant]
     Indication: PRODUCT USED FOR UNKNOWN INDICATION
  11. SUPPLEMENT WITH COCOA [Concomitant]
     Indication: PRODUCT USED FOR UNKNOWN INDICATION
  12. DOSTINEX [Concomitant]
     Indication: PRODUCT USED FOR UNKNOWN INDICATION
  13. COUMADIN [Concomitant]
     Indication: PRODUCT USED FOR UNKNOWN INDICATION
  14. DUTASTERIDE [Concomitant]
     Indication: PRODUCT USED FOR UNKNOWN INDICATION
  15. URSODIOL [Concomitant]
     Indication: PRODUCT USED FOR UNKNOWN INDICATION
  16. SARGRAMOSTIM [Concomitant]
     Indication: PRODUCT USED FOR UNKNOWN INDICATION
  17. CURCUMINOIDS AND SESQUITERPENOIDS [Concomitant]
     Indication: PRODUCT USED FOR UNKNOWN INDICATION
  18. SUPPLEMENT WITH RESVERATROL [Concomitant]
     Indication: PRODUCT USED FOR UNKNOWN INDICATION
  19. SUPPLEMENT WITH OLIVE LEAF [Concomitant]
     Indication: PRODUCT USED FOR UNKNOWN INDICATION
  20. PROVENGE SUSPENSION [Suspect]
     Route: 042
     Dates: start: 20110203, end: 20110203
  21. ACTIGALL [Concomitant]
     Indication: PRODUCT USED FOR UNKNOWN INDICATION
  22. POMEGRANATE SEED [Concomitant]
     Indication: PRODUCT USED FOR UNKNOWN INDICATION
  23. OMEPRAZOLE [Concomitant]
     Indication: PRODUCT USED FOR UNKNOWN INDICATION
  24. SUPPLEMENT WITH CRANBERRY [Concomitant]
     Indication: PRODUCT USED FOR UNKNOWN INDICATION
  25. LUPRON DEPOT [Suspect]
     Indication: PRODUCT USED FOR UNKNOWN INDICATION
     Route: 058
  26. PROVENGE SUSPENSION [Suspect]
     Route: 042
     Dates: start: 20110106, end: 20110106
  27. KETOCONAZOLE [Concomitant]
     Indication: PRODUCT USED FOR UNKNOWN INDICATION
  28. HYDROMORPHONE HCL [Concomitant]
     Indication: PRODUCT USED FOR UNKNOWN INDICATION
  29. PRILOSEC [Concomitant]
     Indication: PRODUCT USED FOR UNKNOWN INDICATION
  30. VIVELLE-DOT [Concomitant]
     Indication: PRODUCT USED FOR UNKNOWN INDICATION
     Dosage: PATCH
     Route: 062
  31. WARFARIN [Concomitant]
     Indication: PRODUCT USED FOR UNKNOWN INDICATION
  32. PROVENGE SUSPENSION [Suspect]
     Indication: PROSTATE CANCER METASTATIC
     Route: 042
     Dates: start: 20101210, end: 20101210
  33. IV PAIN MED NOS [Suspect]
     Indication: PRODUCT USED FOR UNKNOWN INDICATION
     Route: 042
  34. AVODART [Concomitant]
     Indication: PRODUCT USED FOR UNKNOWN INDICATION
  35. VITAMIN D [Concomitant]
     Indication: PRODUCT USED FOR UNKNOWN INDICATION
  36. CABERGOLINE [Concomitant]
     Indication: PRODUCT USED FOR UNKNOWN INDICATION

REACTIONS (14)
  - METASTASES TO BONE [None]
  - BLOOD CREATINE PHOSPHOKINASE ABNORMAL [None]
  - FATIGUE [None]
  - BONE PAIN [None]
  - PRESYNCOPE [None]
  - ADVERSE DRUG REACTION [None]
  - THROMBOCYTOPENIA [None]
  - DIZZINESS [None]
  - NORMOCHROMIC NORMOCYTIC ANAEMIA [None]
  - VOMITING [None]
  - CHOLELITHIASIS [None]
  - PROSTATIC SPECIFIC ANTIGEN INCREASED [None]
  - COELIAC ARTERY STENOSIS [None]
  - ASPARTATE AMINOTRANSFERASE ABNORMAL [None]
